FAERS Safety Report 6547499-2 (Version None)
Quarter: 2010Q1

REPORT INFORMATION
  Report Type: 
  Country: None (occurrence: None)
  Receive Date: 20100122
  Receipt Date: 20100112
  Transmission Date: 20100710
  Serious: Yes (Hospitalization)
  Sender: FDA-Public Use
  Company Number: US-WATSON-2009-10477

PATIENT
  Sex: Male
  Weight: 88.435 kg

DRUGS (1)
  1. FENTANYL-100 [Suspect]
     Indication: LIMB INJURY
     Dosage: 1 PATCH EVERY 48 HOURS
     Route: 062

REACTIONS (5)
  - ACCIDENTAL OVERDOSE [None]
  - CYANOSIS [None]
  - EYE DISORDER [None]
  - RESPIRATORY ARREST [None]
  - UNRESPONSIVE TO STIMULI [None]
